FAERS Safety Report 19419874 (Version 4)
Quarter: 2021Q3

REPORT INFORMATION
  Report Type: Spontaneous
  Country: US (occurrence: US)
  Receive Date: 20210615
  Receipt Date: 20210719
  Transmission Date: 20211014
  Serious: Yes (Other)
  Sender: FDA-Public Use
  Company Number: US-ELI_LILLY_AND_COMPANY-US202105000145

PATIENT

DRUGS (1)
  1. TRULICITY [Suspect]
     Active Substance: DULAGLUTIDE
     Indication: PRODUCT USED FOR UNKNOWN INDICATION
     Dosage: UNK UNK, UNKNOWN
     Route: 065
     Dates: start: 202104

REACTIONS (8)
  - Brain neoplasm [Unknown]
  - Feeding disorder [Unknown]
  - Vertigo [Not Recovered/Not Resolved]
  - Nerve injury [Unknown]
  - Ear swelling [Unknown]
  - Weight decreased [Unknown]
  - Deafness unilateral [Unknown]
  - Sinus disorder [Unknown]

NARRATIVE: CASE EVENT DATE: 20210601
